FAERS Safety Report 7487106-8 (Version None)
Quarter: 2011Q2

REPORT INFORMATION
  Report Type: 
  Country: None (occurrence: None)
  Receive Date: 20110510
  Receipt Date: 20110505
  Transmission Date: 20111010
  Serious: Yes (Hospitalization)
  Sender: FDA-Public Use
  Company Number: B0717327A

PATIENT
  Age: 20 Year
  Sex: Female

DRUGS (6)
  1. IPRATROPIUM BROMIDE [Suspect]
  2. OXYGEN [Concomitant]
  3. LEVOFLOXACIN [Concomitant]
  4. ALBUTEROL SULFATE [Suspect]
     Indication: ASTHMA
  5. ADRENALIN IN OIL INJ [Concomitant]
  6. METHYLPREDNISOLONE [Concomitant]

REACTIONS (5)
  - CONDITION AGGRAVATED [None]
  - ASTHMA [None]
  - METABOLIC ACIDOSIS [None]
  - BLOOD GLUCOSE INCREASED [None]
  - HEART RATE INCREASED [None]
